FAERS Safety Report 5354859-4 (Version None)
Quarter: 2007Q2

REPORT INFORMATION
  Report Type: 
  Country: None (occurrence: None)
  Receive Date: 20070612
  Receipt Date: 20070523
  Transmission Date: 20071010
  Serious: Yes (Hospitalization, Other)
  Sender: FDA-Public Use
  Company Number: US-PFIZER INC-2007020512

PATIENT
  Sex: Male
  Weight: 61.2 kg

DRUGS (2)
  1. CELEBREX [Suspect]
     Indication: ARTHRITIS
     Dosage: DAILY DOSE:400MG
     Route: 048
  2. BEXTRA [Suspect]
     Indication: ARTHRITIS
     Dosage: DAILY DOSE:20MG
     Route: 048
     Dates: start: 20010301

REACTIONS (2)
  - CEREBROVASCULAR ACCIDENT [None]
  - MYOCARDIAL INFARCTION [None]
